FAERS Safety Report 5778806-6 (Version None)
Quarter: 2008Q2

REPORT INFORMATION
  Report Type: 
  Country: None (occurrence: None)
  Receive Date: 20080617
  Receipt Date: 20080602
  Transmission Date: 20081010
  Serious: Yes (Other)
  Sender: FDA-Public Use
  Company Number: 231290J07USA

PATIENT
  Age: 58 Year
  Sex: Female

DRUGS (11)
  1. REBIF [Suspect]
     Indication: MULTIPLE SCLEROSIS
     Dosage: 44 MCG, 3 IN 1 WEEKS, SUBCUTANEOUS; 22 MCG,  3 IN 1 WEEKS, SUBCUTANEOUS
     Route: 058
     Dates: end: 20071109
  2. REBIF [Suspect]
     Indication: MULTIPLE SCLEROSIS
     Dosage: 44 MCG, 3 IN 1 WEEKS, SUBCUTANEOUS; 22 MCG,  3 IN 1 WEEKS, SUBCUTANEOUS
     Route: 058
     Dates: start: 20061125
  3. CLONIDINE [Concomitant]
  4. LISINOPRIL [Concomitant]
  5. FUROSEMIDE [Concomitant]
  6. CALCITRIOL [Concomitant]
  7. MINOXIDIL [Concomitant]
  8. LOVASTATIN [Concomitant]
  9. VICODIN [Concomitant]
  10. PROCHLORPERAZINE MALEATE [Concomitant]
  11. OMEPRAZOLE [Concomitant]

REACTIONS (5)
  - DIALYSIS [None]
  - GLOMERULONEPHRITIS [None]
  - NEPHROTIC SYNDROME [None]
  - RENAL FAILURE CHRONIC [None]
  - WEIGHT DECREASED [None]
